FAERS Safety Report 7775785-7 (Version None)
Quarter: 2011Q3

REPORT INFORMATION
  Report Type: 
  Country: None (occurrence: None)
  Receive Date: 20110923
  Receipt Date: 20110909
  Transmission Date: 20111222
  Serious: Yes (Other)
  Sender: FDA-Public Use
  Company Number: GB-WATSON-2011-14577

PATIENT
  Age: 76 Year
  Sex: Female
  Weight: 67 kg

DRUGS (29)
  1. AQUEOUS CREAM [Concomitant]
     Indication: PRODUCT USED FOR UNKNOWN INDICATION
     Dosage: UNK
     Route: 065
     Dates: start: 20110519, end: 20110616
  2. ACETAMINOPHEN [Concomitant]
     Indication: PRODUCT USED FOR UNKNOWN INDICATION
     Dosage: UNK
     Route: 065
     Dates: start: 20110614, end: 20110626
  3. RAMIPRIL [Concomitant]
     Dosage: UNK
     Route: 065
     Dates: start: 20110718
  4. SLOZEM [Concomitant]
     Indication: PRODUCT USED FOR UNKNOWN INDICATION
     Dosage: UNK
     Route: 065
     Dates: start: 20110519, end: 20110712
  5. TRIMETHOPRIM [Concomitant]
     Indication: PRODUCT USED FOR UNKNOWN INDICATION
     Dosage: UNK
     Route: 065
     Dates: start: 20110608, end: 20110615
  6. HIDROXOCOBALAMINA [Concomitant]
     Indication: PRODUCT USED FOR UNKNOWN INDICATION
     Dosage: UNK
     Route: 065
     Dates: start: 20110622, end: 20110623
  7. LOFEPRAMINE [Concomitant]
     Indication: PRODUCT USED FOR UNKNOWN INDICATION
     Dosage: UNK
     Route: 065
     Dates: start: 20110418
  8. ZOPICLONE [Concomitant]
     Indication: PRODUCT USED FOR UNKNOWN INDICATION
     Dosage: UNK
     Route: 065
     Dates: start: 20110519, end: 20110712
  9. ZOPICLONE [Concomitant]
     Dosage: UNK
     Route: 065
     Dates: start: 20110718
  10. CLOPIDOGREL [Concomitant]
     Indication: PRODUCT USED FOR UNKNOWN INDICATION
     Dosage: UNK
     Route: 065
     Dates: start: 20110617, end: 20110717
  11. DOCUSATE SODIUM [Concomitant]
     Indication: PRODUCT USED FOR UNKNOWN INDICATION
     Dosage: UNK
     Route: 065
     Dates: start: 20110519, end: 20110714
  12. LORATADINE [Concomitant]
     Indication: PRODUCT USED FOR UNKNOWN INDICATION
     Dosage: UNK
     Route: 065
     Dates: start: 20110617, end: 20110717
  13. OMEPRAZOLE [Concomitant]
     Dosage: UNK
     Route: 065
     Dates: start: 20110718
  14. BECLOMETHASONE DIPROPIONATE [Concomitant]
     Dosage: UNK
     Route: 065
     Dates: start: 20110718
  15. HYPROMELLOSE [Concomitant]
     Indication: PRODUCT USED FOR UNKNOWN INDICATION
     Dosage: UNK
     Route: 065
     Dates: start: 20110519, end: 20110712
  16. HYPROMELLOSE [Concomitant]
     Dosage: UNK
     Route: 065
     Dates: start: 20110718
  17. MEPTAZINOL [Concomitant]
     Indication: PRODUCT USED FOR UNKNOWN INDICATION
     Dosage: UNK
     Route: 065
     Dates: start: 20110815
  18. OMEPRAZOLE [Concomitant]
     Indication: PRODUCT USED FOR UNKNOWN INDICATION
     Dosage: UNK
     Route: 065
     Dates: start: 20110519, end: 20110712
  19. RAMIPRIL [Concomitant]
     Indication: PRODUCT USED FOR UNKNOWN INDICATION
     Dosage: UNK
     Route: 065
     Dates: start: 20110519, end: 20110712
  20. HIDROXOCOBALAMINA [Concomitant]
     Dosage: UNK
     Route: 065
     Dates: start: 20110816, end: 20110817
  21. DOCUSATE SODIUM [Concomitant]
     Dosage: UNK
     Route: 065
     Dates: start: 20110718
  22. SIMVASTATIN [Suspect]
     Indication: PRODUCT USED FOR UNKNOWN INDICATION
     Dosage: UNK
     Route: 065
     Dates: start: 20110901
  23. SIMVASTATIN [Suspect]
     Dosage: UNK
     Route: 065
     Dates: start: 20110725, end: 20110822
  24. BECLOMETHASONE DIPROPIONATE [Concomitant]
     Indication: PRODUCT USED FOR UNKNOWN INDICATION
     Dosage: UNK
     Route: 065
     Dates: start: 20110614, end: 20110712
  25. CALCIUM CARBONATE [Concomitant]
     Indication: PRODUCT USED FOR UNKNOWN INDICATION
     Dosage: UNK
     Route: 065
     Dates: start: 20110519
  26. GABAPENTIN [Concomitant]
     Indication: PRODUCT USED FOR UNKNOWN INDICATION
     Dosage: UNK
     Route: 065
     Dates: start: 20110519, end: 20110712
  27. GABAPENTIN [Concomitant]
     Dosage: UNK
     Route: 065
     Dates: start: 20110718
  28. HIDROXOCOBALAMINA [Concomitant]
     Dosage: UNK
     Route: 065
     Dates: start: 20110720, end: 20110721
  29. SLOZEM [Concomitant]
     Dosage: UNK
     Route: 065
     Dates: start: 20110718

REACTIONS (1)
  - CONTUSION [None]
